FAERS Safety Report 13746138 (Version 3)
Quarter: 2017Q3

REPORT INFORMATION
  Report Type: Report from Study
  Country: FR (occurrence: FR)
  Receive Date: 20170712
  Receipt Date: 20170929
  Transmission Date: 20171127
  Serious: No
  Sender: FDA-Public Use
  Company Number: FR-VIIV HEALTHCARE LIMITED-FR2017GSK105941

PATIENT
  Age: 56 Year
  Sex: Female

DRUGS (4)
  1. NORVIR [Concomitant]
     Active Substance: RITONAVIR
     Indication: HIV INFECTION
  2. INTELENCE [Concomitant]
     Active Substance: ETRAVIRINE
     Indication: HIV INFECTION
  3. REYATAZ [Concomitant]
     Active Substance: ATAZANAVIR SULFATE
     Indication: HIV INFECTION
  4. DOLUTEGRAVIR [Suspect]
     Active Substance: DOLUTEGRAVIR
     Indication: HIV INFECTION
     Dosage: 50 MG, BID
     Dates: start: 20170708

REACTIONS (1)
  - Gait disturbance [Unknown]
